FAERS Safety Report 8494652-7 (Version None)
Quarter: 2012Q2

REPORT INFORMATION
  Report Type: 
  Country: None (occurrence: None)
  Receive Date: 20120627
  Receipt Date: 20120611
  Transmission Date: 20120825
  Serious: Yes (Other)
  Sender: FDA-Public Use
  Company Number: CTI_01468_2012

PATIENT

DRUGS (1)
  1. CUROSURF [Suspect]
     Indication: PRODUCT USED FOR UNKNOWN INDICATION
     Dosage: (DAILY DOSE 240 MILLIGRAM; ONCE INTRATRACHEAL)
     Route: 039
     Dates: start: 20120522, end: 20120522

REACTIONS (1)
  - DRUG INEFFECTIVE [None]
